FAERS Safety Report 12621704 (Version 3)
Quarter: 2017Q1

REPORT INFORMATION
  Report Type: Spontaneous
  Country: US (occurrence: US)
  Receive Date: 20160804
  Receipt Date: 20170223
  Transmission Date: 20170428
  Serious: No
  Sender: FDA-Public Use
  Company Number: US-LUNDBECK-DKLU2016955

PATIENT
  Age: 75 Year
  Sex: Male
  Weight: 72 kg

DRUGS (5)
  1. NORTHERA [Suspect]
     Active Substance: DROXIDOPA
     Dosage: SCHEDULE B
     Route: 065
  2. LEXAPRO [Concomitant]
     Active Substance: ESCITALOPRAM OXALATE
     Indication: DEPRESSION
     Route: 065
  3. NORTHERA [Suspect]
     Active Substance: DROXIDOPA
     Indication: PRODUCT USED FOR UNKNOWN INDICATION
     Dosage: SCHEDULE B
     Route: 065
     Dates: start: 20160707
  4. NORTHERA [Suspect]
     Active Substance: DROXIDOPA
     Route: 065
  5. EXELON [Concomitant]
     Active Substance: RIVASTIGMINE TARTRATE
     Indication: COGNITIVE DISORDER
     Route: 065

REACTIONS (4)
  - Fatigue [Recovered/Resolved]
  - Drug ineffective [Recovered/Resolved]
  - Cognitive disorder [Recovered/Resolved]
  - Dizziness [Recovered/Resolved]

NARRATIVE: CASE EVENT DATE: 201607
